FAERS Safety Report 24308418 (Version 1)
Quarter: 2024Q3

REPORT INFORMATION
  Report Type: Other
  Country: JP (occurrence: JP)
  Receive Date: 20240911
  Receipt Date: 20240911
  Transmission Date: 20241016
  Serious: Yes (Life-Threatening, Other)
  Sender: BIOCON
  Company Number: JP-MLMSERVICE-20171030-0943576-1

PATIENT

DRUGS (4)
  1. PEGFILGRASTIM [Suspect]
     Active Substance: PEGFILGRASTIM
     Indication: Triple negative breast cancer
     Dosage: 3.6 MILLIGRAM, 5 CYCLICAL, AT INTERVALS OF 3 WEEKS
     Route: 058
  2. DOCETAXEL [Suspect]
     Active Substance: DOCETAXEL\DOCETAXEL ANHYDROUS
     Indication: Triple negative breast cancer
     Dosage: 75 MILLIGRAM/SQ. METER, 5 CYCLICAL, AT INTERVALS OF 3 WEEKS
     Route: 065
  3. DOXORUBICIN [Suspect]
     Active Substance: DOXORUBICIN
     Indication: Triple negative breast cancer
     Dosage: 50 MILLIGRAM/SQ. METER, 5 CYCLICAL, AT INTERVALS OF 3 WEEKS
     Route: 065
  4. CYCLOPHOSPHAMIDE [Suspect]
     Active Substance: CYCLOPHOSPHAMIDE
     Indication: Triple negative breast cancer
     Dosage: 500 MILLIGRAM/SQ. METER, 5 CYCLICAL, AT INTERVALS OF 3 WEEKS
     Route: 065

REACTIONS (2)
  - Drug resistance [Unknown]
  - Drug ineffective [Unknown]
